FAERS Safety Report 9171510 (Version 1)
Quarter: 2013Q1

REPORT INFORMATION
  Report Type: Spontaneous
  Country: US (occurrence: US)
  Receive Date: 20130319
  Receipt Date: 20130319
  Transmission Date: 20140127
  Serious: Yes (Hospitalization, Other)
  Sender: FDA-Public Use
  Company Number: US-ELI_LILLY_AND_COMPANY-US201303002891

PATIENT
  Age: 80 Year
  Sex: Male

DRUGS (8)
  1. HUMALOG LISPRO [Suspect]
     Indication: TYPE 2 DIABETES MELLITUS
     Dosage: 30 U, PRN
  2. GLUCOTROL [Concomitant]
  3. METFORMIN [Concomitant]
  4. LANTUS [Concomitant]
  5. AXID [Concomitant]
  6. CELEBREX [Concomitant]
  7. LASIX [Concomitant]
  8. BABY ASPIRIN [Concomitant]

REACTIONS (11)
  - Arthralgia [Not Recovered/Not Resolved]
  - Back pain [Not Recovered/Not Resolved]
  - Vitreous floaters [Not Recovered/Not Resolved]
  - Insomnia [Not Recovered/Not Resolved]
  - Irritability [Not Recovered/Not Resolved]
  - Memory impairment [Not Recovered/Not Resolved]
  - Glycosylated haemoglobin increased [Not Recovered/Not Resolved]
  - Coronary artery occlusion [Unknown]
  - Gastric perforation [Unknown]
  - Pneumonia [Unknown]
  - Blood glucose increased [Unknown]
